FAERS Safety Report 22269991 (Version 1)
Quarter: 2023Q2

REPORT INFORMATION
  Report Type: Spontaneous
  Country: US (occurrence: None)
  Receive Date: 20230428
  Receipt Date: 20230428
  Transmission Date: 20230722
  Serious: Yes (Disabling)
  Sender: FDA-Public Use
  Company Number: None

PATIENT
  Age: 46 Year
  Sex: Female
  Weight: 88.2 kg

DRUGS (13)
  1. VUMERITY [Suspect]
     Active Substance: DIROXIMEL FUMARATE
     Indication: Multiple sclerosis
     Dates: start: 20230201, end: 20230228
  2. WELLBUTRIN [Concomitant]
     Active Substance: BUPROPION HYDROCHLORIDE
  3. KYLEENA [Concomitant]
     Active Substance: LEVONORGESTREL
  4. IUD NOS [Concomitant]
     Active Substance: COPPER OR LEVONORGESTREL
  5. FLAXSEED [Concomitant]
     Active Substance: FLAX SEED
  6. HERBALS\TURMERIC [Concomitant]
     Active Substance: HERBALS\TURMERIC
  7. VITAMIN D3 [Concomitant]
     Active Substance: CHOLECALCIFEROL
  8. VITAMINS [Concomitant]
     Active Substance: VITAMINS
  9. CLARITIN [Concomitant]
     Active Substance: LORATADINE
  10. FLONASE [Concomitant]
     Active Substance: FLUTICASONE PROPIONATE
  11. MAGNESIUM [Concomitant]
     Active Substance: MAGNESIUM
  12. APPLE CIDER VINEGAR [Concomitant]
  13. BIOTIN [Concomitant]
     Active Substance: BIOTIN

REACTIONS (1)
  - Tremor [None]

NARRATIVE: CASE EVENT DATE: 20230301
